FAERS Safety Report 17716254 (Version 3)
Quarter: 2021Q3

REPORT INFORMATION
  Report Type: Spontaneous
  Country: US (occurrence: US)
  Receive Date: 20200428
  Receipt Date: 20210820
  Transmission Date: 20211014
  Serious: Yes (Death, Hospitalization, Other)
  Sender: FDA-Public Use
  Company Number: US-ASTRAZENECA-2020SE55136

PATIENT
  Age: 53 Year
  Sex: Male
  Weight: 154.9 kg

DRUGS (47)
  1. PRILOSEC OTC [Suspect]
     Active Substance: OMEPRAZOLE MAGNESIUM
     Indication: GASTROOESOPHAGEAL REFLUX DISEASE
     Route: 048
     Dates: start: 199901, end: 201705
  2. NITROGLYCERINE [Concomitant]
     Active Substance: NITROGLYCERIN
     Indication: ANGINA UNSTABLE
     Dates: end: 201705
  3. METFORMIN [Concomitant]
     Active Substance: METFORMIN HYDROCHLORIDE
     Indication: DIABETES MELLITUS
     Dates: end: 201705
  4. LIDOCAIN [Concomitant]
     Active Substance: LIDOCAINE
  5. VICTOZA [Concomitant]
     Active Substance: LIRAGLUTIDE
  6. TRAMADOL. [Concomitant]
     Active Substance: TRAMADOL
  7. PRILOSEC [Suspect]
     Active Substance: OMEPRAZOLE MAGNESIUM
     Indication: GASTROOESOPHAGEAL REFLUX DISEASE
     Route: 048
     Dates: start: 199901, end: 201705
  8. PREVACID [Suspect]
     Active Substance: LANSOPRAZOLE
     Indication: GASTROOESOPHAGEAL REFLUX DISEASE
     Route: 065
     Dates: start: 199901, end: 201705
  9. PROTONIX [Suspect]
     Active Substance: PANTOPRAZOLE SODIUM
     Indication: GASTROOESOPHAGEAL REFLUX DISEASE
     Route: 065
     Dates: start: 2000, end: 2017
  10. TUMS [Concomitant]
     Active Substance: CALCIUM CARBONATE
  11. WARFARIN [Concomitant]
     Active Substance: WARFARIN
  12. ALBUTEROL. [Concomitant]
     Active Substance: ALBUTEROL
  13. GLIMEPIRIDE. [Concomitant]
     Active Substance: GLIMEPIRIDE
     Indication: DIABETES MELLITUS
     Dates: end: 201705
  14. FUROSEMIDE. [Concomitant]
     Active Substance: FUROSEMIDE
     Indication: CARDIAC FAILURE
     Dates: end: 201705
  15. LASIX [Concomitant]
     Active Substance: FUROSEMIDE
  16. HEPARIN [Concomitant]
     Active Substance: HEPARIN SODIUM
  17. DETEMIR [Concomitant]
     Active Substance: INSULIN DETEMIR
  18. KLOR?CON [Concomitant]
     Active Substance: POTASSIUM CHLORIDE
  19. DEXILANT [Suspect]
     Active Substance: DEXLANSOPRAZOLE
     Indication: GASTROOESOPHAGEAL REFLUX DISEASE
     Route: 065
     Dates: start: 199901, end: 201705
  20. LISINOPRIL. [Concomitant]
     Active Substance: LISINOPRIL
     Indication: HYPERTENSION
     Dates: end: 201705
  21. MONTELUKAST [Concomitant]
     Active Substance: MONTELUKAST SODIUM
  22. DEXILANT [Suspect]
     Active Substance: DEXLANSOPRAZOLE
     Indication: GASTROOESOPHAGEAL REFLUX DISEASE
     Route: 065
     Dates: start: 2009, end: 2017
  23. PREVACID [Suspect]
     Active Substance: LANSOPRAZOLE
     Indication: GASTROOESOPHAGEAL REFLUX DISEASE
     Route: 065
     Dates: start: 1999, end: 2017
  24. FOSINOPRIL [Concomitant]
     Active Substance: FOSINOPRIL
     Indication: DIURETIC THERAPY
     Dates: end: 201705
  25. COLACE [Concomitant]
     Active Substance: DOCUSATE SODIUM
  26. HYDRALAZINE [Concomitant]
     Active Substance: HYDRALAZINE HYDROCHLORIDE
  27. PRILOSEC OTC [Suspect]
     Active Substance: OMEPRAZOLE MAGNESIUM
     Indication: GASTROOESOPHAGEAL REFLUX DISEASE
     Route: 048
     Dates: start: 2003, end: 2017
  28. FLOMAX [Concomitant]
     Active Substance: TAMSULOSIN HYDROCHLORIDE
  29. PREDNISONE. [Concomitant]
     Active Substance: PREDNISONE
  30. VALSARTAN. [Concomitant]
     Active Substance: VALSARTAN
  31. NITROSTAT [Concomitant]
     Active Substance: NITROGLYCERIN
  32. PROTONIX [Suspect]
     Active Substance: PANTOPRAZOLE SODIUM
     Indication: GASTROOESOPHAGEAL REFLUX DISEASE
     Route: 065
     Dates: start: 199901, end: 201705
  33. LIPITOR [Concomitant]
     Active Substance: ATORVASTATIN CALCIUM
     Indication: BLOOD CHOLESTEROL INCREASED
     Dates: end: 201705
  34. ROLAIDS [Concomitant]
     Active Substance: CALCIUM CARBONATE\MAGNESIUM HYDROXIDE
  35. HALDOL [Concomitant]
     Active Substance: HALOPERIDOL
  36. ZOFRAN [Concomitant]
     Active Substance: ONDANSETRON HYDROCHLORIDE
  37. HYDROMORPHONE [Concomitant]
     Active Substance: HYDROMORPHONE
  38. ATENOLOL. [Concomitant]
     Active Substance: ATENOLOL
  39. SUCRALFATE. [Concomitant]
     Active Substance: SUCRALFATE
  40. PRILOSEC [Suspect]
     Active Substance: OMEPRAZOLE MAGNESIUM
     Indication: GASTROOESOPHAGEAL REFLUX DISEASE
     Route: 048
     Dates: start: 1999, end: 2017
  41. PRILOSEC [Suspect]
     Active Substance: OMEPRAZOLE MAGNESIUM
     Indication: GASTROOESOPHAGEAL REFLUX DISEASE
     Dosage: GENERIC
     Route: 065
     Dates: end: 201705
  42. AMLODIPINE [Concomitant]
     Active Substance: AMLODIPINE BESYLATE
     Indication: CHRONIC KIDNEY DISEASE
     Dates: end: 201705
  43. DIAZEPAM. [Concomitant]
     Active Substance: DIAZEPAM
  44. ONDANSETRONE [Concomitant]
     Active Substance: ONDANSETRON
  45. ATROPINE. [Concomitant]
     Active Substance: ATROPINE
  46. ATORVASTATIN [Concomitant]
     Active Substance: ATORVASTATIN
  47. DEXTROSE. [Concomitant]
     Active Substance: DEXTROSE

REACTIONS (6)
  - Atrial fibrillation [Fatal]
  - Acute kidney injury [Unknown]
  - Renal failure [Fatal]
  - Acute respiratory failure [Fatal]
  - Encephalopathy [Fatal]
  - Chronic kidney disease [Unknown]

NARRATIVE: CASE EVENT DATE: 2003
